FAERS Safety Report 4629217-8 (Version None)
Quarter: 2005Q2

REPORT INFORMATION
  Report Type: 
  Country: None (occurrence: None)
  Receive Date: 20050404
  Receipt Date: 20050404
  Transmission Date: 20051028
  Serious: Yes (Other)
  Sender: FDA-Public Use
  Company Number: None

PATIENT
  Age: 28 Year
  Sex: Female
  Weight: 58.9676 kg

DRUGS (2)
  1. CEFAZOLIN [Suspect]
     Indication: PREOPERATIVE CARE
     Dosage: 1 GM X 1 VIA PIV
     Route: 042
  2. CEFAZOLIN [Suspect]
     Indication: SURGERY
     Dosage: 1 GM X 1 VIA PIV
     Route: 042

REACTIONS (4)
  - ERYTHEMA [None]
  - INFUSION RELATED REACTION [None]
  - LIVEDO RETICULARIS [None]
  - PRURITUS [None]
